FAERS Safety Report 18796190 (Version 2)
Quarter: 2022Q1

REPORT INFORMATION
  Report Type: Spontaneous
  Country: US (occurrence: US)
  Receive Date: 20210127
  Receipt Date: 20220318
  Transmission Date: 20220423
  Serious: Yes (Hospitalization)
  Sender: FDA-Public Use
  Company Number: US-PFIZER INC-2021062734

PATIENT
  Age: 72 Year
  Sex: Female
  Weight: 68.036 kg

DRUGS (2)
  1. IBRANCE [Suspect]
     Active Substance: PALBOCICLIB
     Indication: Breast cancer stage IV
     Dosage: 75 MG, CYCLIC (3 WEEKS BY MOUTH AND 1 WEEK OFF)
     Route: 048
  2. FASLODEX [Concomitant]
     Active Substance: FULVESTRANT
     Indication: Breast cancer female
     Dosage: UNK, MONTHLY (UNKNOWN DOSE AND INJECTED ONCE MONTHLY. TWO HUGE SYRINGES)

REACTIONS (3)
  - Myocardial infarction [Recovered/Resolved]
  - Bradyphrenia [Unknown]
  - Asthenia [Unknown]

NARRATIVE: CASE EVENT DATE: 20200605
